FAERS Safety Report 24887361 (Version 2)
Quarter: 2025Q1

REPORT INFORMATION
  Report Type: Report from Study
  Country: US (occurrence: US)
  Receive Date: 20250127
  Receipt Date: 20250211
  Transmission Date: 20250409
  Serious: Yes (Other)
  Sender: ABBVIE
  Company Number: US-ABBVIE-6102220

PATIENT
  Age: 31 Year
  Sex: Female
  Weight: 59.874 kg

DRUGS (4)
  1. RINVOQ [Suspect]
     Active Substance: UPADACITINIB
     Indication: Colitis ulcerative
     Dosage: FORM STRENGTH 30 MG
     Route: 048
     Dates: start: 20240508
  2. ATENOLOL [Concomitant]
     Active Substance: ATENOLOL
     Indication: Bone tuberculosis
  3. DOXYCYCLINE [Concomitant]
     Active Substance: DOXYCYCLINE
     Indication: Dermatitis
  4. FARXIGA [Concomitant]
     Active Substance: DAPAGLIFLOZIN PROPANEDIOL
     Indication: Diabetes mellitus

REACTIONS (3)
  - Loss of consciousness [Recovered/Resolved]
  - Norovirus infection [Recovered/Resolved]
  - Nausea [Recovered/Resolved]

NARRATIVE: CASE EVENT DATE: 20241201
